FAERS Safety Report 7806719-4 (Version None)
Quarter: 2011Q4

REPORT INFORMATION
  Report Type: 
  Country: None (occurrence: None)
  Receive Date: 20111011
  Receipt Date: 20111006
  Transmission Date: 20120403
  Serious: Yes (Death, Other)
  Sender: FDA-Public Use
  Company Number: PHHY2011NL82881

PATIENT
  Sex: Female

DRUGS (10)
  1. BUMETANIDE [Concomitant]
     Dosage: 2 MG, UNK
  2. NEXIUM [Concomitant]
     Dosage: 2X40
  3. PERINDOPRIL ERBUMINE [Concomitant]
     Dosage: 2 MG, UNK
  4. ALDACTONE [Concomitant]
     Dosage: 25 MG, UNK
  5. TRAMADOL HYDROCHLORIDE [Concomitant]
     Dosage: 150 MG, UNK
  6. PREDNISONE [Concomitant]
     Dosage: 5 MG, UNK
  7. ZOLEDRONOC ACID [Suspect]
     Indication: OSTEOPOROSIS
     Dosage: 5 MG/ 100 ML
     Route: 042
     Dates: start: 20110722
  8. AMITRIPTYLINE HCL [Concomitant]
     Dosage: UNK UKN, UNK
  9. ACETAMINOPHEN [Concomitant]
     Dosage: 4 G,
  10. LORAZEPAM [Concomitant]
     Dosage: 1 MG, UNK

REACTIONS (14)
  - HYPOTENSION [None]
  - ANURIA [None]
  - CARDIAC FAILURE [None]
  - BLOOD POTASSIUM INCREASED [None]
  - SYNCOPE [None]
  - EJECTION FRACTION DECREASED [None]
  - PNEUMONIA [None]
  - BLOOD SODIUM DECREASED [None]
  - BLOOD CREATININE INCREASED [None]
  - CARDIAC DISORDER [None]
  - HAEMOGLOBIN DECREASED [None]
  - GAMMA-GLUTAMYLTRANSFERASE INCREASED [None]
  - C-REACTIVE PROTEIN INCREASED [None]
  - RENAL FAILURE [None]
